FAERS Safety Report 9316807 (Version 1)
Quarter: 2013Q2

REPORT INFORMATION
  Report Type: Spontaneous
  Country: FR (occurrence: FR)
  Receive Date: 20130530
  Receipt Date: 20130530
  Transmission Date: 20140414
  Serious: Yes (Other)
  Sender: FDA-Public Use
  Company Number: FR-ROCHE-1229869

PATIENT
  Age: 64 Year
  Sex: Male

DRUGS (7)
  1. XOLAIR [Suspect]
     Indication: ASTHMA
     Route: 058
     Dates: start: 20120724
  2. XOLAIR [Suspect]
     Route: 058
     Dates: start: 201301
  3. XOLAIR [Suspect]
     Route: 058
     Dates: end: 20130429
  4. SYMBICORT [Suspect]
     Indication: ASTHMA
     Route: 065
     Dates: start: 20110117
  5. QVAR [Suspect]
     Indication: ASTHMA
     Route: 065
     Dates: start: 20110117
  6. PREDNISOLONE [Suspect]
     Indication: ASTHMA
     Route: 065
     Dates: start: 20110629, end: 20130128
  7. INEXIUM [Concomitant]
     Indication: PROPHYLAXIS AGAINST GASTROINTESTINAL ULCER
     Route: 048
     Dates: start: 20110629, end: 20130128

REACTIONS (3)
  - Weight decreased [Not Recovered/Not Resolved]
  - Muscle atrophy [Unknown]
  - Vitamin D decreased [Recovered/Resolved]
